FAERS Safety Report 6045714-5 (Version None)
Quarter: 2009Q1

REPORT INFORMATION
  Report Type: 
  Country: None (occurrence: None)
  Receive Date: 20090121
  Receipt Date: 20090121
  Transmission Date: 20090719
  Serious: Yes (Death, Hospitalization)
  Sender: FDA-Public Use
  Company Number: US-PFIZER INC-2008100772

PATIENT
  Sex: Male
  Weight: 88 kg

DRUGS (4)
  1. DILANTIN [Suspect]
     Indication: CONVULSION
     Dates: start: 20080901
  2. DEPAKOTE [Concomitant]
  3. KEPPRA [Concomitant]
  4. TRANXENE [Concomitant]

REACTIONS (2)
  - CEREBROVASCULAR ACCIDENT [None]
  - MYOCARDIAL INFARCTION [None]
